FAERS Safety Report 6301594-1 (Version None)
Quarter: 2009Q3

REPORT INFORMATION
  Report Type: 
  Country: None (occurrence: None)
  Receive Date: 20090807
  Receipt Date: 20090728
  Transmission Date: 20100115
  Serious: Yes (Other)
  Sender: FDA-Public Use
  Company Number: US-ELI_LILLY_AND_COMPANY-US200907006610

PATIENT
  Sex: Male

DRUGS (2)
  1. ALIMTA [Suspect]
     Dosage: 470 MG/M2, UNK
     Dates: start: 20090609, end: 20090630
  2. CARBOPLATIN [Concomitant]
     Dosage: 5 D/F, AUC=5
     Dates: start: 20090609, end: 20090630

REACTIONS (3)
  - BACTERAEMIA [None]
  - DIARRHOEA [None]
  - PANCYTOPENIA [None]
